FAERS Safety Report 7680298-7 (Version None)
Quarter: 2011Q3

REPORT INFORMATION
  Report Type: 
  Country: None (occurrence: None)
  Receive Date: 20110812
  Receipt Date: 20110727
  Transmission Date: 20111222
  Serious: Yes (Hospitalization)
  Sender: FDA-Public Use
  Company Number: US-GLAXOSMITHKLINE-A0874096A

PATIENT
  Age: 50 Year
  Sex: Male
  Weight: 136.4 kg

DRUGS (12)
  1. THEO-DUR [Concomitant]
  2. ALDOMET [Concomitant]
  3. GLUCOTROL [Concomitant]
  4. AVANDIA [Suspect]
     Indication: TYPE 2 DIABETES MELLITUS
     Dosage: 8MG PER DAY
     Route: 048
     Dates: start: 19990501, end: 20070101
  5. GLUCOPHAGE [Concomitant]
  6. LISINOPRIL [Concomitant]
     Dates: end: 20020801
  7. ALDOMET [Concomitant]
  8. REZULIN [Concomitant]
  9. PREDNISONE [Concomitant]
  10. ELAVIL [Concomitant]
  11. PROTONIX [Concomitant]
  12. VENTOLIN HFA [Concomitant]

REACTIONS (4)
  - TRANSIENT ISCHAEMIC ATTACK [None]
  - MYOCARDIAL INFARCTION [None]
  - ILL-DEFINED DISORDER [None]
  - RENAL FAILURE ACUTE [None]
